FAERS Safety Report 5584801-2 (Version None)
Quarter: 2007Q4

REPORT INFORMATION
  Report Type: 
  Country: None (occurrence: None)
  Receive Date: 20071130
  Receipt Date: 20070730
  Transmission Date: 20080405
  Serious: Yes (Other)
  Sender: FDA-Public Use
  Company Number: WAES 0707USA04742

PATIENT
  Age: 75 Year
  Sex: Female

DRUGS (1)
  1. FOSAMAX [Suspect]
     Indication: OSTEOPOROSIS
     Dosage: PO
     Route: 048
     Dates: start: 20000823, end: 20060201

REACTIONS (4)
  - ABSCESS ORAL [None]
  - DEPRESSION [None]
  - NERVOUSNESS [None]
  - OSTEONECROSIS [None]
